FAERS Safety Report 9249286 (Version 1)
Quarter: 2013Q2

REPORT INFORMATION
  Report Type: Spontaneous
  Country: US (occurrence: US)
  Receive Date: 20130423
  Receipt Date: 20130423
  Transmission Date: 20140414
  Serious: No
  Sender: FDA-Public Use
  Company Number: US-BAYER-2013-049119

PATIENT
  Age: 79 Year
  Sex: Male
  Weight: 97.51 kg

DRUGS (1)
  1. ALEVE CAPLET [Suspect]
     Indication: ARTHRITIS
     Dosage: 2 DF, PRN
     Route: 048
     Dates: start: 2010

REACTIONS (4)
  - Drug ineffective [None]
  - Incorrect dose administered [None]
  - Pre-existing condition improved [None]
  - Incorrect dose administered [None]
